FAERS Safety Report 7025235-3 (Version None)
Quarter: 2010Q4

REPORT INFORMATION
  Report Type: 
  Country: None (occurrence: None)
  Receive Date: 20101001
  Receipt Date: 20100921
  Transmission Date: 20110411
  Serious: Yes (Congenital Anomaly, Other)
  Sender: FDA-Public Use
  Company Number: US-WATSON-2010-12726

PATIENT
  Age: 34 Week

DRUGS (2)
  1. TRAZODONE HYDROCHLORIDE [Suspect]
     Indication: INSOMNIA
     Dosage: UNK
     Route: 064
  2. VENLAFAXINE HCL EXTENDED-RELEASE [Suspect]
     Indication: PRODUCT USED FOR UNKNOWN INDICATION
     Dosage: UNK
     Route: 064

REACTIONS (7)
  - COARCTATION OF THE AORTA [None]
  - CONGENITAL ABSENCE OF BILE DUCTS [None]
  - CONGENITAL HEPATOBILIARY ANOMALY [None]
  - CONGENITAL SMALL INTESTINAL ATRESIA [None]
  - GASTROINTESTINAL MALFORMATION [None]
  - HEART DISEASE CONGENITAL [None]
  - PREMATURE BABY [None]
